FAERS Safety Report 19714323 (Version 1)
Quarter: 2021Q3

REPORT INFORMATION
  Report Type: Spontaneous
  Country: US (occurrence: US)
  Receive Date: 20210817
  Receipt Date: 20210817
  Transmission Date: 20211014
  Serious: Yes (Hospitalization)
  Sender: FDA-Public Use
  Company Number: None

PATIENT
  Age: 49 Year
  Sex: Male
  Weight: 85.2 kg

DRUGS (2)
  1. AVASTIN [Concomitant]
     Active Substance: BEVACIZUMAB
  2. TEMOZOLOMIDE. [Suspect]
     Active Substance: TEMOZOLOMIDE
     Dates: end: 20200901

REACTIONS (14)
  - Wound infection [None]
  - Impaired healing [None]
  - Wound secretion [None]
  - Incision site discharge [None]
  - Dysphagia [None]
  - Fall [None]
  - Skin graft [None]
  - Enterobacter test positive [None]
  - Wound complication [None]
  - Head injury [None]
  - Cerebrospinal fluid leakage [None]
  - Infection [None]
  - Hydrocephalus [None]
  - Brain abscess [None]

NARRATIVE: CASE EVENT DATE: 20210511
